FAERS Safety Report 5801701-0 (Version None)
Quarter: 2008Q3

REPORT INFORMATION
  Report Type: 
  Country: None (occurrence: None)
  Receive Date: 20080707
  Receipt Date: 20080627
  Transmission Date: 20090109
  Serious: Yes (Hospitalization)
  Sender: FDA-Public Use
  Company Number: B0527071A

PATIENT
  Age: 75 Year
  Sex: Female

DRUGS (3)
  1. ZOVIRAX [Suspect]
     Dosage: 750MG THREE TIMES PER DAY
     Route: 042
     Dates: start: 20071120, end: 20071123
  2. VALACYCLOVIR HCL [Concomitant]
     Dates: start: 20071123
  3. IRBESARTAN [Concomitant]

REACTIONS (3)
  - BLOOD CREATININE INCREASED [None]
  - BLOOD UREA INCREASED [None]
  - RENAL FAILURE ACUTE [None]
